FAERS Safety Report 13376705 (Version 1)
Quarter: 2017Q1

REPORT INFORMATION
  Report Type: Spontaneous
  Country: US (occurrence: US)
  Receive Date: 20170328
  Receipt Date: 20170328
  Transmission Date: 20170429
  Serious: No
  Sender: FDA-Public Use
  Company Number: US-BAYER-2017-058407

PATIENT
  Age: 79 Year
  Sex: Female
  Weight: 53.97 kg

DRUGS (4)
  1. CLARITIN [Suspect]
     Active Substance: LORATADINE
     Indication: NASOPHARYNGITIS
  2. GLUCOSAMINE [Concomitant]
     Active Substance: GLUCOSAMINE
  3. ZIAXEL [Concomitant]
  4. CLARITIN [Suspect]
     Active Substance: LORATADINE
     Indication: HYPERSENSITIVITY
     Dosage: TAKING 1 TABLET WITH FOOD AROUND 5 PM
     Route: 048
     Dates: start: 20170324

REACTIONS (1)
  - Drug ineffective [Unknown]

NARRATIVE: CASE EVENT DATE: 20170324
